FAERS Safety Report 9170371 (Version 3)
Quarter: 2013Q3

REPORT INFORMATION
  Report Type: Spontaneous
  Country: US (occurrence: US)
  Receive Date: 20130319
  Receipt Date: 20130729
  Transmission Date: 20140515
  Serious: Yes (Hospitalization, Other)
  Sender: FDA-Public Use
  Company Number: US-SANOFI-AVENTIS-2013SA027046

PATIENT
  Age: 76 Year
  Sex: Female

DRUGS (5)
  1. LANTUS SOLOSTAR [Suspect]
     Indication: TYPE 2 DIABETES MELLITUS
     Dosage: DOSE:50 UNIT(S)
     Route: 051
     Dates: start: 2007
  2. SOLOSTAR [Suspect]
     Indication: TYPE 2 DIABETES MELLITUS
     Dates: start: 2007
  3. VITAMIN D3 [Concomitant]
  4. VITAMIN A [Concomitant]
  5. ALL OTHER THERAPEUTIC PRODUCTS [Concomitant]

REACTIONS (13)
  - Blepharospasm [Not Recovered/Not Resolved]
  - Laser therapy [Unknown]
  - Cataract operation [Unknown]
  - Eye haemorrhage [Not Recovered/Not Resolved]
  - Ketoacidosis [Unknown]
  - Cellulitis [Not Recovered/Not Resolved]
  - Hyperglycaemia [Unknown]
  - Headache [Not Recovered/Not Resolved]
  - Feeling abnormal [Not Recovered/Not Resolved]
  - Expired drug administered [Unknown]
  - Skin disorder [Unknown]
  - Malaise [Unknown]
  - Erythema [Not Recovered/Not Resolved]
